FAERS Safety Report 7365213-8 (Version None)
Quarter: 2011Q1

REPORT INFORMATION
  Report Type: 
  Country: None (occurrence: None)
  Receive Date: 20110321
  Receipt Date: 20110228
  Transmission Date: 20110831
  Serious: Yes (Hospitalization, Other)
  Sender: FDA-Public Use
  Company Number: PHHY2010BR87674

PATIENT
  Sex: Male

DRUGS (1)
  1. DIOVAN AMLO [Suspect]

REACTIONS (6)
  - CEREBROVASCULAR ACCIDENT [None]
  - DEPRESSION [None]
  - BLOOD PRESSURE INADEQUATELY CONTROLLED [None]
  - QUADRIPLEGIA [None]
  - PNEUMONIA [None]
  - CONVULSION [None]
